FAERS Safety Report 8307367-2 (Version None)
Quarter: 2012Q2

REPORT INFORMATION
  Report Type: 
  Country: None (occurrence: None)
  Receive Date: 20120424
  Receipt Date: 20120413
  Transmission Date: 20120825
  Serious: Yes (Other)
  Sender: FDA-Public Use
  Company Number: US-BRISTOL-MYERS SQUIBB COMPANY-16521718

PATIENT
  Age: 71 Year
  Sex: Female
  Weight: 100 kg

DRUGS (7)
  1. VITAMIN B COMPLEX CAP [Concomitant]
  2. VITRON-C [Concomitant]
     Indication: MINERAL SUPPLEMENTATION
  3. CALCIUM [Concomitant]
  4. TAXOL [Suspect]
     Indication: BREAST CANCER
  5. FLAXSEED OIL [Concomitant]
  6. ASCORBIC ACID [Concomitant]
  7. NEOMYCIN SULFATE TAB [Suspect]
     Indication: BREAST CANCER

REACTIONS (3)
  - BLOOD PRESSURE ABNORMAL [None]
  - NEUROPATHY PERIPHERAL [None]
  - THYROID DISORDER [None]
